FAERS Safety Report 5087728-8 (Version None)
Quarter: 2006Q3

REPORT INFORMATION
  Report Type: 
  Country: None (occurrence: None)
  Receive Date: 20060824
  Receipt Date: 20060814
  Transmission Date: 20061208
  Serious: Yes (Other)
  Sender: FDA-Public Use
  Company Number: IT-BRISTOL-MYERS SQUIBB COMPANY-13475595

PATIENT
  Age: 63 Year
  Sex: Female

DRUGS (1)
  1. AMPICILLIN [Suspect]
     Indication: MENINGITIS LISTERIA

REACTIONS (1)
  - HAEMORRHAGIC DISORDER [None]
